FAERS Safety Report 8502781-4 (Version None)
Quarter: 2012Q3

REPORT INFORMATION
  Report Type: 
  Country: None (occurrence: None)
  Receive Date: 20120711
  Receipt Date: 20120627
  Transmission Date: 20120928
  Serious: Yes (Hospitalization)
  Sender: FDA-Public Use
  Company Number: GB-MYLANLABS-2012S1013190

PATIENT
  Age: 44 Year
  Sex: Male

DRUGS (2)
  1. AMIODARONE HCL [Suspect]
     Indication: CARDIOVERSION
     Dosage: 300MG ADMINISTERED OVER 30 MINUTES
     Route: 042
  2. AMIODARONE HCL [Suspect]
     Dosage: MAINTENANCE DOSE: 900MG OVER 24 H
     Route: 042

REACTIONS (1)
  - HEPATOTOXICITY [None]
